FAERS Safety Report 26119862 (Version 1)
Quarter: 2025Q4

REPORT INFORMATION
  Report Type: Spontaneous
  Country: US (occurrence: US)
  Receive Date: 20251204
  Receipt Date: 20251204
  Transmission Date: 20260119
  Serious: Yes (Death, Hospitalization, Other)
  Sender: IPCA
  Company Number: US-IPCA LABORATORIES LIMITED-IPC-2025-US-003324

PATIENT

DRUGS (1)
  1. ALENDRONATE SODIUM [Suspect]
     Active Substance: ALENDRONATE SODIUM
     Indication: Product used for unknown indication
     Dosage: 420 MILLIGRAM
     Route: 048

REACTIONS (6)
  - Intestinal pseudo-obstruction [Fatal]
  - Sepsis [Fatal]
  - Acute kidney injury [Fatal]
  - Intestinal ischaemia [Fatal]
  - Hypermagnesaemia [Fatal]
  - Accidental overdose [Fatal]
